FAERS Safety Report 17797193 (Version 1)
Quarter: 2020Q2

REPORT INFORMATION
  Report Type: Spontaneous
  Country: US (occurrence: US)
  Receive Date: 20200518
  Receipt Date: 20200518
  Transmission Date: 20200714
  Serious: No
  Sender: FDA-Public Use
  Company Number: US-ASTRAZENECA-2020SE55269

PATIENT
  Sex: Male
  Weight: 89.4 kg

DRUGS (1)
  1. ROSUVASTATIN. [Suspect]
     Active Substance: ROSUVASTATIN
     Indication: BLOOD CHOLESTEROL ABNORMAL
     Route: 048

REACTIONS (4)
  - Muscle tightness [Not Recovered/Not Resolved]
  - Hypokinesia [Not Recovered/Not Resolved]
  - Myalgia [Not Recovered/Not Resolved]
  - Knuckle pads [Not Recovered/Not Resolved]
